FAERS Safety Report 4617732-2 (Version None)
Quarter: 2005Q1

REPORT INFORMATION
  Report Type: 
  Country: None (occurrence: None)
  Receive Date: 20050324
  Receipt Date: 20050317
  Transmission Date: 20050727
  Serious: Yes (Hospitalization)
  Sender: FDA-Public Use
  Company Number: GB-ROCHE-399108

PATIENT
  Sex: Female
  Weight: 88 kg

DRUGS (1)
  1. XENICAL [Suspect]
     Indication: DRUG USE FOR UNKNOWN INDICATION
     Route: 048
     Dates: start: 20020709, end: 20040315

REACTIONS (3)
  - CHOLELITHIASIS [None]
  - DYSPEPSIA [None]
  - HEPATIC ENZYME INCREASED [None]
